FAERS Safety Report 9279207 (Version 1)
Quarter: 2013Q2

REPORT INFORMATION
  Report Type: Spontaneous
  Country: US (occurrence: US)
  Receive Date: 20130508
  Receipt Date: 20130508
  Transmission Date: 20140414
  Serious: Yes (Hospitalization)
  Sender: FDA-Public Use
  Company Number: US-PFIZER INC-2013140029

PATIENT
  Age: 52 Year
  Sex: Male
  Weight: 136 kg

DRUGS (2)
  1. CELEBREX [Suspect]
     Indication: ARTHRITIS
     Dosage: UNK
  2. ARTHROTEC [Suspect]
     Indication: ARTHRITIS
     Dosage: 50/200 MG, 2X/DAY

REACTIONS (5)
  - Cardiac disorder [Unknown]
  - Malaise [Unknown]
  - Pyrexia [Unknown]
  - Local swelling [Unknown]
  - Emotional disorder [Unknown]
